FAERS Safety Report 25722510 (Version 2)
Quarter: 2025Q3

REPORT INFORMATION
  Report Type: Spontaneous
  Country: US (occurrence: US)
  Receive Date: 20250825
  Receipt Date: 20250827
  Transmission Date: 20251020
  Serious: Yes (Death)
  Sender: OTSUKA
  Company Number: US-MMM-Otsuka-XD2BMC5R

PATIENT
  Age: 9 Decade
  Sex: Male

DRUGS (1)
  1. REXULTI [Suspect]
     Active Substance: BREXPIPRAZOLE
     Indication: Product used for unknown indication
     Route: 048

REACTIONS (1)
  - Death [Fatal]

NARRATIVE: CASE EVENT DATE: 20250201
